FAERS Safety Report 4811806-9 (Version None)
Quarter: 2005Q4

REPORT INFORMATION
  Report Type: 
  Country: None (occurrence: None)
  Receive Date: 20051027
  Receipt Date: 20051027
  Transmission Date: 20060501
  Serious: Yes (Hospitalization)
  Sender: FDA-Public Use
  Company Number: None

PATIENT
  Age: 57 Year
  Sex: Male
  Weight: 81.6475 kg

DRUGS (1)
  1. BACTRIM DS [Suspect]
     Indication: BURSITIS
     Dosage: 800MG/160MG  BID PO
     Route: 048
     Dates: start: 20050830, end: 20050831

REACTIONS (3)
  - FEELING ABNORMAL [None]
  - PALPITATIONS [None]
  - TINNITUS [None]
